FAERS Safety Report 9208639 (Version 2)
Quarter: 2013Q2

REPORT INFORMATION
  Report Type: Spontaneous
  Country: BR (occurrence: BR)
  Receive Date: 20130404
  Receipt Date: 20130411
  Transmission Date: 20140414
  Serious: Yes (Death, Hospitalization)
  Sender: FDA-Public Use
  Company Number: BR-PFIZER INC-2013104356

PATIENT
  Sex: Male

DRUGS (1)
  1. SUTENT [Suspect]
     Indication: RENAL CANCER
     Dosage: 50 MG (ONE TABLET), 1X/DAY
     Route: 048
     Dates: start: 20120920

REACTIONS (3)
  - Death [Fatal]
  - General physical health deterioration [Not Recovered/Not Resolved]
  - Dysstasia [Not Recovered/Not Resolved]
